FAERS Safety Report 8360084-5 (Version None)
Quarter: 2012Q2

REPORT INFORMATION
  Report Type: 
  Country: None (occurrence: None)
  Receive Date: 20120515
  Receipt Date: 20120503
  Transmission Date: 20120825
  Serious: Yes (Other)
  Sender: FDA-Public Use
  Company Number: BR-JNJFOC-20120507608

PATIENT
  Age: 88 Year
  Sex: Male
  Weight: 62 kg

DRUGS (5)
  1. HEMAX [Concomitant]
  2. TRAMADOL HYDROCHLORIDE [Suspect]
     Indication: PAIN
     Route: 065
     Dates: end: 20120503
  3. ACETAMINOPHEN W/ CODEINE [Interacting]
     Indication: PAIN
     Dosage: 30 MG 1 IN 6 HOUR
     Route: 048
     Dates: start: 20120401, end: 20120503
  4. DIPYRONE TAB [Interacting]
     Indication: PAIN
     Route: 065
     Dates: end: 20120503
  5. SIMVASTATIN [Concomitant]

REACTIONS (3)
  - CONFUSIONAL STATE [None]
  - HALLUCINATION [None]
  - DRUG INTERACTION [None]
